FAERS Safety Report 6349205-3 (Version None)
Quarter: 2009Q3

REPORT INFORMATION
  Report Type: 
  Country: None (occurrence: None)
  Receive Date: 20090911
  Receipt Date: 20090601
  Transmission Date: 20100115
  Serious: Yes (Other)
  Sender: FDA-Public Use
  Company Number: US-BAYER-200931753GPV

PATIENT
  Age: 43 Year
  Sex: Female

DRUGS (12)
  1. SORAFENIB [Suspect]
     Indication: DRUG USE FOR UNKNOWN INDICATION
     Route: 065
  2. ZOMETA [Suspect]
     Indication: METASTASES TO BONE
  3. ROFERON-A [Suspect]
     Indication: RENAL CANCER METASTATIC
     Route: 065
  4. FARLUTAL [Suspect]
     Indication: DRUG USE FOR UNKNOWN INDICATION
     Route: 065
  5. AVASTIN [Suspect]
     Indication: DRUG USE FOR UNKNOWN INDICATION
     Route: 065
  6. RADIOTHERAPY [Suspect]
     Indication: RENAL CANCER METASTATIC
     Dosage: 30 GY IN 10 FRACTIONS
  7. SUTENT [Concomitant]
  8. SOLUPRED [Concomitant]
  9. XANAX [Concomitant]
  10. LAROXYL [Concomitant]
  11. OMEPRAZOLE [Concomitant]
  12. MORPHINE [Concomitant]

REACTIONS (5)
  - CARCINOID TUMOUR PULMONARY [None]
  - OSTEONECROSIS [None]
  - PHLEBITIS INFECTIVE [None]
  - TOOTH EXTRACTION [None]
  - TOOTHACHE [None]
